FAERS Safety Report 7943871-4 (Version None)
Quarter: 2011Q4

REPORT INFORMATION
  Report Type: 
  Country: None (occurrence: None)
  Receive Date: 20111128
  Receipt Date: 20111118
  Transmission Date: 20120403
  Serious: Yes (Other)
  Sender: FDA-Public Use
  Company Number: US-ASTRAZENECA-2011SE70586

PATIENT
  Age: 42 Year
  Sex: Female
  Weight: 79.8 kg

DRUGS (4)
  1. SEROQUEL [Suspect]
     Indication: POST-TRAUMATIC STRESS DISORDER
     Route: 048
  2. CIMBALTA [Concomitant]
  3. SEROQUEL [Suspect]
     Indication: DEPRESSION
     Route: 048
  4. NEURONTIN [Concomitant]

REACTIONS (5)
  - EYE ABSCESS [None]
  - CHEST DISCOMFORT [None]
  - STAPHYLOCOCCAL INFECTION [None]
  - BRONCHITIS [None]
  - MALAISE [None]
